FAERS Safety Report 20927324 (Version 2)
Quarter: 2022Q2

REPORT INFORMATION
  Report Type: Spontaneous
  Country: US (occurrence: US)
  Receive Date: 20220607
  Receipt Date: 20220610
  Transmission Date: 20220721
  Serious: Yes (Life-Threatening)
  Sender: FDA-Public Use
  Company Number: US-SA-2019SA109112

PATIENT
  Age: 40 Year
  Sex: Female

DRUGS (6)
  1. DILTIAZEM [Suspect]
     Active Substance: DILTIAZEM
     Indication: Arteriospasm coronary
     Route: 065
  2. ISOSORBIDE [Suspect]
     Active Substance: ISOSORBIDE
     Indication: Arteriospasm coronary
     Route: 065
  3. ATIVAN [Suspect]
     Active Substance: LORAZEPAM
     Indication: Chest pain
     Route: 042
  4. ATIVAN [Suspect]
     Active Substance: LORAZEPAM
     Indication: Agitation
  5. NITROGLYCERIN [Suspect]
     Active Substance: NITROGLYCERIN
     Indication: Coronary artery stenosis
     Route: 022
  6. NITROGLYCERIN [Suspect]
     Active Substance: NITROGLYCERIN
     Indication: Agitation

REACTIONS (1)
  - Therapy non-responder [Unknown]
